FAERS Safety Report 9109247 (Version 2)
Quarter: 2013Q2

REPORT INFORMATION
  Report Type: Spontaneous
  Country: CA (occurrence: CA)
  Receive Date: 20130222
  Receipt Date: 20130416
  Transmission Date: 20140414
  Serious: Yes (Death, Other)
  Sender: FDA-Public Use
  Company Number: CA-AMGEN-CANSP2013011801

PATIENT
  Age: 65 Year
  Sex: Female
  Weight: 70.5 kg

DRUGS (33)
  1. SENSIPAR [Suspect]
     Indication: HYPERPARATHYROIDISM SECONDARY
     Dosage: 60 MG, QD
     Route: 048
     Dates: start: 20100409, end: 20130106
  2. ACETAMINOPHEN [Concomitant]
     Dosage: 650 MG, BID
     Route: 048
     Dates: start: 20110524
  3. ACETYLSALICYLIC ACID [Concomitant]
     Dosage: 81 MG, QD
     Route: 048
     Dates: start: 20110525
  4. ALUMINUM HYDROXIDE [Concomitant]
     Dosage: 15-30 ML
     Route: 048
     Dates: start: 20101126
  5. ATORVASTATIN CALCIUM [Concomitant]
     Dosage: 40 MG, QHS
     Route: 048
     Dates: start: 20110525
  6. BECLOMETHASONE DIPROPIONATE        /00212602/ [Concomitant]
     Dosage: 1 SPRAY
     Dates: start: 20120425
  7. BISACODYL [Concomitant]
     Dosage: 10 MG, QD
     Route: 054
     Dates: start: 20100526
  8. BUDESONIDE [Concomitant]
     Dosage: 1 MG, BID
     Route: 055
     Dates: start: 20110624
  9. CALCITRIOL [Concomitant]
     Dosage: 0.25 MUG, QHS
     Route: 048
     Dates: start: 20120425
  10. DARBEPOETIN ALFA [Concomitant]
     Dosage: 100 MUG, Q18 DAYS
     Route: 042
     Dates: start: 20121210
  11. DIMENHYDRINATE [Concomitant]
     Dosage: 50 MG, Q6H PM
     Route: 030
     Dates: start: 20100526
  12. DOMPERIDONE MALEATE [Concomitant]
     Dosage: 20 MG, BID
     Route: 048
     Dates: start: 20101126
  13. FENTANYL [Concomitant]
     Dosage: 12 MUG/HR 1 PATCH Q3D
     Route: 062
     Dates: start: 20120904
  14. FLUTICASONE PROPIONATE [Concomitant]
     Dosage: 500 MUG, BID
     Route: 055
     Dates: start: 20110624
  15. GABAPENTIN [Concomitant]
     Dosage: 100 MG, QHS
     Route: 048
     Dates: start: 20100726
  16. HYDROMORPHONE HCL [Concomitant]
     Dosage: UNK
  17. IPRATROPIUM BROMIDE AND SALBUTAMOL SULFATE [Concomitant]
     Dosage: 40 MUG, QID
     Route: 050
     Dates: start: 20110624
  18. IRON DEXTRAN [Concomitant]
     Dosage: 100 MG, EVERY WEEK X 10 DOSES
     Route: 042
     Dates: start: 20121006
  19. LACTULOSE [Concomitant]
     Dosage: 20 ML, TID
     Route: 048
     Dates: start: 20110926
  20. LEVOTHYROXINE SODIUM [Concomitant]
     Dosage: 75 MUG, QD
     Route: 048
     Dates: start: 20100726
  21. LORAZEPAM [Concomitant]
     Dosage: 1 MG, AS NECESSARY
     Route: 060
     Dates: start: 20100322
  22. METOCLOPRAMIDE HYDROCHLORIDE [Concomitant]
     Dosage: 10 MG, PO/IM Q 8 H PRN
     Route: 050
     Dates: start: 20110624
  23. NIFEDIPINE XL [Concomitant]
     Dosage: 60 MG, QHS
     Route: 048
     Dates: start: 20110425
  24. OMEGA 3                            /01334101/ [Concomitant]
     Dosage: 2 TABLET, BID
     Route: 048
     Dates: start: 20120822
  25. PANTOPRAZOLE [Concomitant]
     Dosage: 40 MG, BID
     Route: 048
     Dates: start: 20100726
  26. QUININE SULPHATE [Concomitant]
     Dosage: 300 MG, PRE DIALYSIS
     Route: 048
     Dates: start: 20100726
  27. SALBUTAMOL [Concomitant]
  28. SENNOSIDE                          /00571901/ [Concomitant]
     Dosage: 17.2 MG, QHS
     Route: 048
     Dates: start: 20100927
  29. SODIUM CHLORIDE [Concomitant]
     Dosage: 0.9% 2 ML NEB PRN
     Route: 055
     Dates: start: 20110624
  30. SODIUM PHOSPHATE [Concomitant]
     Dosage: AS DIRECTED
     Route: 054
     Dates: start: 20121024
  31. VENLAFAXINE HYDROCHLORIDE [Concomitant]
  32. VITAMINS /90003601/ [Concomitant]
     Dosage: 1 CAPSULE, QD
     Route: 048
     Dates: start: 20100726
  33. ZOPICLONE [Concomitant]
     Dosage: 15 MG, QHS
     Route: 048
     Dates: start: 20110525

REACTIONS (6)
  - Cardiac arrest [Fatal]
  - Squamous cell carcinoma of skin [Unknown]
  - Cellulitis [Unknown]
  - Rib fracture [Unknown]
  - Fractured coccyx [Unknown]
  - Pneumonia [Unknown]
